FAERS Safety Report 9383361 (Version 1)
Quarter: 2013Q3

REPORT INFORMATION
  Report Type: Report from Study
  Country: FR (occurrence: FR)
  Receive Date: 20130704
  Receipt Date: 20130704
  Transmission Date: 20140515
  Serious: Yes (Hospitalization, Other)
  Sender: FDA-Public Use
  Company Number: FR-ROCHE-1243470

PATIENT
  Age: 42 Year
  Sex: Female
  Weight: 75 kg

DRUGS (17)
  1. TOCILIZUMAB [Suspect]
     Indication: RHEUMATOID ARTHRITIS
     Dosage: ON 5/SEP/2012 LAST INFUSION BEFORE SAE
     Route: 065
     Dates: start: 20110916
  2. TOCILIZUMAB [Suspect]
     Route: 065
     Dates: start: 20111012
  3. TOCILIZUMAB [Suspect]
     Route: 065
     Dates: start: 20111110
  4. TOCILIZUMAB [Suspect]
     Route: 065
     Dates: start: 20111207
  5. TOCILIZUMAB [Suspect]
     Route: 065
     Dates: start: 20120104
  6. TOCILIZUMAB [Suspect]
     Route: 065
     Dates: start: 20120210
  7. TOCILIZUMAB [Suspect]
     Route: 065
     Dates: start: 20120314
  8. TOCILIZUMAB [Suspect]
     Route: 065
     Dates: start: 20120426
  9. TOCILIZUMAB [Suspect]
     Route: 065
     Dates: start: 20120704
  10. TOCILIZUMAB [Suspect]
     Route: 065
     Dates: start: 20120801
  11. TOCILIZUMAB [Suspect]
     Route: 065
     Dates: start: 20120905
  12. TOCILIZUMAB [Suspect]
     Route: 065
     Dates: start: 20130123
  13. TOCILIZUMAB [Suspect]
     Route: 065
     Dates: start: 20130220
  14. TOCILIZUMAB [Suspect]
     Route: 065
     Dates: start: 20130320
  15. CORTANCYL [Concomitant]
     Route: 065
  16. DOLIPRANE [Concomitant]
  17. IXPRIM [Concomitant]

REACTIONS (3)
  - Bursitis [Unknown]
  - Lymphoedema [Unknown]
  - Inguinal mass [Unknown]
